FAERS Safety Report 4567931-3 (Version None)
Quarter: 2005Q1

REPORT INFORMATION
  Report Type: 
  Country: None (occurrence: None)
  Receive Date: 20050202
  Receipt Date: 20040315
  Transmission Date: 20050727
  Serious: No
  Sender: FDA-Public Use
  Company Number: US-GLAXOSMITHKLINE-A0502875A

PATIENT
  Sex: Female

DRUGS (4)
  1. NAVELBINE [Suspect]
     Indication: NON-SMALL CELL LUNG CANCER
     Dosage: 30MGM2 WEEKLY
     Route: 042
     Dates: start: 20030908
  2. GEMCITABINE [Concomitant]
  3. TAXOL [Concomitant]
     Indication: CHEMOTHERAPY
  4. CARBOPLATIN [Concomitant]
     Indication: CHEMOTHERAPY

REACTIONS (1)
  - DYSPHONIA [None]
